FAERS Safety Report 19657205 (Version 1)
Quarter: 2021Q3

REPORT INFORMATION
  Report Type: Report from Study
  Country: None (occurrence: PR)
  Receive Date: 20210804
  Receipt Date: 20210804
  Transmission Date: 20211014
  Serious: Yes (Other)
  Sender: FDA-Public Use
  Company Number: PR-ABBVIE-21K-131-4019188-00

PATIENT
  Age: 55 Year
  Sex: Female

DRUGS (2)
  1. HUMIRA [Suspect]
     Active Substance: ADALIMUMAB
     Indication: PSORIATIC ARTHROPATHY
     Route: 058
  2. HUMIRA [Suspect]
     Active Substance: ADALIMUMAB
     Indication: PSORIATIC ARTHROPATHY
     Route: 058
     Dates: start: 2018

REACTIONS (7)
  - Breast pain [Not Recovered/Not Resolved]
  - Arthralgia [Not Recovered/Not Resolved]
  - Noninfective gingivitis [Recovering/Resolving]
  - Ophthalmoplegia [Recovering/Resolving]
  - Exostosis [Not Recovered/Not Resolved]
  - Haematoma [Recovered/Resolved]
  - Muscular weakness [Recovering/Resolving]

NARRATIVE: CASE EVENT DATE: 2021
